FAERS Safety Report 16863868 (Version 1)
Quarter: 2019Q3

REPORT INFORMATION
  Report Type: Spontaneous
  Country: MX (occurrence: MX)
  Receive Date: 20190927
  Receipt Date: 20190927
  Transmission Date: 20191005
  Serious: Yes (Other)
  Sender: FDA-Public Use
  Company Number: MX-PFIZER INC-2019399153

PATIENT
  Age: 52 Year
  Sex: Female
  Weight: 64.8 kg

DRUGS (5)
  1. IBRANCE [Suspect]
     Active Substance: PALBOCICLIB
     Indication: BREAST CANCER
     Dosage: 100 MG, 1 DF DAILY DURING 21 DAYS
     Route: 048
     Dates: start: 20190410
  2. LETROZOLE. [Concomitant]
     Active Substance: LETROZOLE
     Indication: BREAST CANCER
     Dosage: 2.5 MG, 1 DF DAILY
     Route: 048
     Dates: start: 20170518
  3. CHLORPROPAMIDE/METFORMIN [Concomitant]
     Indication: TYPE 2 DIABETES MELLITUS
     Dosage: 513/125 MG, 1 DF IN THE MORNING AND 1/2 DF AT NIGHT
     Route: 048
     Dates: start: 20180209
  4. PARACETAMOL [Concomitant]
     Active Substance: ACETAMINOPHEN
     Indication: PAIN
     Dosage: 500 MG, AS NEEDED
     Dates: start: 201701
  5. LOPERAMIDE [Concomitant]
     Active Substance: LOPERAMIDE
     Indication: DIARRHOEA
     Dosage: 2 MG, 3X/DAY
     Route: 048
     Dates: start: 20180412

REACTIONS (2)
  - Neutropenia [Recovered/Resolved]
  - Haematotoxicity [Recovered/Resolved]

NARRATIVE: CASE EVENT DATE: 20190508
